FAERS Safety Report 5283940-3 (Version None)
Quarter: 2007Q2

REPORT INFORMATION
  Report Type: 
  Country: None (occurrence: None)
  Receive Date: 20070402
  Receipt Date: 20070321
  Transmission Date: 20071010
  Serious: Yes (Death, Other)
  Sender: FDA-Public Use
  Company Number: US-PFIZER INC-2005051911

PATIENT
  Sex: Male

DRUGS (3)
  1. NEURONTIN [Suspect]
     Indication: ILL-DEFINED DISORDER
     Dosage: TEXT:200-300MG UP TO THREE TIMES DAILY
     Route: 048
  2. CLONIDINE [Concomitant]
     Route: 065
  3. TEMAZEPAM [Concomitant]
     Route: 048

REACTIONS (7)
  - BLISTER [None]
  - COMMUNICATION DISORDER [None]
  - DEATH [None]
  - DROOLING [None]
  - MOUTH PLAQUE [None]
  - OVERDOSE [None]
  - UNRESPONSIVE TO STIMULI [None]
